FAERS Safety Report 7863143-6 (Version None)
Quarter: 2011Q4

REPORT INFORMATION
  Report Type: 
  Country: None (occurrence: None)
  Receive Date: 20111027
  Receipt Date: 20101129
  Transmission Date: 20120403
  Serious: No
  Sender: FDA-Public Use
  Company Number: US-AMGEN-USASP2010006859

PATIENT
  Age: 69 Year
  Sex: Female

DRUGS (1)
  1. ENBREL [Suspect]
     Indication: RHEUMATOID ARTHRITIS
     Dosage: 50 MG, QWK
     Dates: start: 20000101, end: 20101020

REACTIONS (15)
  - WEIGHT DECREASED [None]
  - CHILLS [None]
  - GASTRIC DISORDER [None]
  - RHEUMATOID ARTHRITIS [None]
  - HAEMOGLOBIN DECREASED [None]
  - EYE INFECTION [None]
  - ANAL ABSCESS [None]
  - SINUSITIS [None]
  - MOUTH ULCERATION [None]
  - PROTEIN URINE [None]
  - BLOOD URINE PRESENT [None]
  - PYREXIA [None]
  - DRY MOUTH [None]
  - BLOOD PRESSURE INCREASED [None]
  - LYMPHADENOPATHY [None]
